FAERS Safety Report 8525374-1 (Version None)
Quarter: 2012Q3

REPORT INFORMATION
  Report Type: 
  Country: None (occurrence: None)
  Receive Date: 20120710
  Receipt Date: 20120709
  Transmission Date: 20120928
  Serious: Yes (Other)
  Sender: FDA-Public Use
  Company Number: 2012032340

PATIENT
  Age: 62 Year
  Sex: Male

DRUGS (2)
  1. IMMUNE GLOBULIN (HUMAN) [Suspect]
     Indication: GUILLAIN-BARRE SYNDROME
     Dosage: 1 G/KG/DAY X 3 DAYS, 1 G/KG/DAY 3 DAYS, 1 G/KG/DAY C 3 DAYS  INTRAVENOUS (NOT OTHER WISE SPECIFIED)
     Route: 042
     Dates: start: 20120407, end: 20120407
  2. IMMUNE GLOBULIN (HUMAN) [Suspect]
     Indication: GUILLAIN-BARRE SYNDROME
     Dosage: 1 G/KG/DAY X 3 DAYS, 1 G/KG/DAY 3 DAYS, 1 G/KG/DAY C 3 DAYS  INTRAVENOUS (NOT OTHER WISE SPECIFIED)
     Route: 042
     Dates: start: 20120405, end: 20120407

REACTIONS (3)
  - DEPRESSED MOOD [None]
  - NEUTROPENIA [None]
  - HEADACHE [None]
